FAERS Safety Report 4356140-9 (Version None)
Quarter: 2004Q2

REPORT INFORMATION
  Report Type: 
  Country: None (occurrence: None)
  Receive Date: 20040511
  Receipt Date: 20040505
  Transmission Date: 20050107
  Serious: Yes (Life-Threatening, Hospitalization)
  Sender: FDA-Public Use
  Company Number: PHRM2004FR01737

PATIENT
  Age: 92 Year
  Sex: Female
  Weight: 58 kg

DRUGS (5)
  1. VOLTAREN [Suspect]
     Indication: OSTEOARTHRITIS
     Dosage: 100 MG, QD
     Route: 048
     Dates: start: 20031010, end: 20040316
  2. MEPRONIZINE [Concomitant]
     Indication: SLEEP DISORDER
     Dosage: 0.5 DF/DAY
     Route: 048
  3. MOPRAL [Concomitant]
     Indication: OESOPHAGITIS
     Dosage: 20 MG/DAY
     Route: 048
  4. NITRIDERM TTS [Concomitant]
     Indication: ISCHAEMIC CARDIOMYOPATHY
     Dosage: 10 MG/24H
     Route: 062
  5. LAMALINE [Concomitant]
     Indication: ARTHRALGIA
     Dosage: 6 DF/DAY
     Route: 048

REACTIONS (3)
  - CARDIAC FAILURE [None]
  - MELAENA [None]
  - RED BLOOD CELL COUNT DECREASED [None]
